FAERS Safety Report 25608001 (Version 1)
Quarter: 2025Q3

REPORT INFORMATION
  Report Type: Spontaneous
  Country: US (occurrence: US)
  Receive Date: 20250725
  Receipt Date: 20250725
  Transmission Date: 20251020
  Serious: No
  Sender: SANOFI AVENTIS
  Company Number: US-SANOFI-02595783

PATIENT
  Sex: Male

DRUGS (1)
  1. DUPIXENT [Suspect]
     Active Substance: DUPILUMAB
     Indication: Eosinophilic oesophagitis
     Dosage: UNK UNK, QW
     Route: 065

REACTIONS (9)
  - Allergy to arthropod sting [Unknown]
  - Skin induration [Unknown]
  - Muscle swelling [Recovering/Resolving]
  - Musculoskeletal stiffness [Unknown]
  - Paraesthesia [Unknown]
  - Hypoaesthesia [Unknown]
  - Myalgia [Not Recovered/Not Resolved]
  - Movement disorder [Unknown]
  - Skin burning sensation [Unknown]

NARRATIVE: CASE EVENT DATE: 20250701
